FAERS Safety Report 9671403 (Version 1)
Quarter: 2013Q4

REPORT INFORMATION
  Report Type: Spontaneous
  Country: US (occurrence: None)
  Receive Date: 20131105
  Receipt Date: 20131105
  Transmission Date: 20140711
  Serious: No
  Sender: FDA-Public Use
  Company Number: None

PATIENT
  Age: 25 Year
  Sex: Male
  Weight: 63.5 kg

DRUGS (1)
  1. MIRVASO [Suspect]
     Indication: ROSACEA
     Dosage: APPLY ONCE DAILY TO FACE AS NEEDED?APPLED TO A SURFACE, USUALLY THE SKIN
     Dates: start: 20131001, end: 20131104

REACTIONS (3)
  - Pruritus [None]
  - Flushing [None]
  - Drug ineffective [None]
